FAERS Safety Report 7231308-2 (Version None)
Quarter: 2011Q1

REPORT INFORMATION
  Report Type: 
  Country: None (occurrence: None)
  Receive Date: 20110118
  Receipt Date: 20110104
  Transmission Date: 20110831
  Serious: Yes (Hospitalization, Other)
  Sender: FDA-Public Use
  Company Number: PHHY2011GB01443

PATIENT
  Age: 39 Year
  Sex: Female

DRUGS (6)
  1. ACETAMINOPHEN [Suspect]
  2. CITALOPRAM HYDROBROMIDE [Suspect]
     Dosage: UNK
  3. CAFFEINE [Concomitant]
  4. BENZODIAZEPINES [Concomitant]
  5. ALCOHOL [Suspect]
  6. ALPRAZOLAM [Suspect]

REACTIONS (8)
  - UNRESPONSIVE TO STIMULI [None]
  - ANALGESIC DRUG LEVEL INCREASED [None]
  - COMA [None]
  - PROTHROMBIN TIME PROLONGED [None]
  - LIVER INJURY [None]
  - OVERDOSE [None]
  - DEPRESSED LEVEL OF CONSCIOUSNESS [None]
  - ACIDOSIS [None]
